FAERS Safety Report 20473232 (Version 2)
Quarter: 2024Q3

REPORT INFORMATION
  Report Type: Spontaneous
  Country: US (occurrence: US)
  Receive Date: 20220215
  Receipt Date: 20240808
  Transmission Date: 20241016
  Serious: Yes (Hospitalization)
  Sender: GLAXOSMITHKLINE
  Company Number: US-MMM-WAH746VG

PATIENT
  Sex: Female

DRUGS (1)
  1. BREO ELLIPTA [Suspect]
     Active Substance: FLUTICASONE FUROATE\VILANTEROL TRIFENATATE
     Indication: Product used for unknown indication
     Dosage: 1 PUFF(S), QD, (200-25MCG, BY MOUTH)
     Route: 055
     Dates: start: 2012

REACTIONS (2)
  - Hospitalisation [Unknown]
  - Pharyngeal disorder [Not Recovered/Not Resolved]
